FAERS Safety Report 4270978-8 (Version None)
Quarter: 2004Q1

REPORT INFORMATION
  Report Type: 
  Country: None (occurrence: None)
  Receive Date: 20040114
  Receipt Date: 20031224
  Transmission Date: 20041129
  Serious: No
  Sender: FDA-Public Use
  Company Number: WAES 0312USA02493

PATIENT
  Age: 60 Year
  Sex: Female

DRUGS (4)
  1. ASPIRIN ALUMINUM [Suspect]
     Route: 048
     Dates: start: 20020531, end: 20031108
  2. CLOTIAZEPAM [Suspect]
     Indication: INSOMNIA
     Route: 048
     Dates: start: 20031017, end: 20031108
  3. COZAAR [Suspect]
     Route: 048
     Dates: start: 20010528, end: 20030415
  4. COZAAR [Suspect]
     Route: 048
     Dates: start: 20030616, end: 20031108

REACTIONS (1)
  - MYOSITIS [None]
